FAERS Safety Report 7215362-X (Version None)
Quarter: 2011Q1

REPORT INFORMATION
  Report Type: 
  Country: None (occurrence: None)
  Receive Date: 20110107
  Receipt Date: 20110103
  Transmission Date: 20110831
  Serious: Yes (Hospitalization)
  Sender: FDA-Public Use
  Company Number: US-ABBOTT-11P-163-0694781-00

PATIENT
  Sex: Male
  Weight: 54.48 kg

DRUGS (2)
  1. HUMIRA [Suspect]
     Indication: CROHN'S DISEASE
     Dates: start: 20100801, end: 20101101
  2. PENTAZA [Concomitant]
     Indication: CROHN'S DISEASE

REACTIONS (2)
  - ABDOMINAL PAIN UPPER [None]
  - INTESTINAL PERFORATION [None]
